FAERS Safety Report 4488282-1 (Version None)
Quarter: 2004Q4

REPORT INFORMATION
  Report Type: 
  Country: None (occurrence: None)
  Receive Date: 20041026
  Receipt Date: 20041013
  Transmission Date: 20050328
  Serious: Yes (Hospitalization)
  Sender: FDA-Public Use
  Company Number: 2004_000085

PATIENT

DRUGS (2)
  1. DEPOCYT [Suspect]
     Dosage: 50 MG; EVERY OTHER WEEK; INTRATHECAL
     Route: 037
     Dates: end: 20041001
  2. DEXAMETHASONE [Concomitant]

REACTIONS (16)
  - BALANCE DISORDER [None]
  - CONVULSION [None]
  - CSF PRESSURE INCREASED [None]
  - FACIAL PALSY [None]
  - HEADACHE [None]
  - METASTASES TO CENTRAL NERVOUS SYSTEM [None]
  - MOTOR DYSFUNCTION [None]
  - MUSCULAR WEAKNESS [None]
  - MUSCULOSKELETAL STIFFNESS [None]
  - NAUSEA [None]
  - OPTIC NEURITIS [None]
  - PAIN [None]
  - PAPILLOEDEMA [None]
  - PARAESTHESIA [None]
  - PYREXIA [None]
  - VOMITING [None]
